FAERS Safety Report 9708744 (Version 1)
Quarter: 2013Q4

REPORT INFORMATION
  Report Type: Report from Study
  Country: JP (occurrence: JP)
  Receive Date: 20131125
  Receipt Date: 20131125
  Transmission Date: 20140711
  Serious: Yes (Other)
  Sender: FDA-Public Use
  Company Number: JP-VIIV HEALTHCARE LIMITED-B0874961A

PATIENT
  Age: 5 Decade
  Sex: Male
  Weight: 79 kg

DRUGS (25)
  1. LEXIVA [Suspect]
     Indication: ACQUIRED IMMUNODEFICIENCY SYNDROME
     Dosage: 700MG TWICE PER DAY
     Route: 048
     Dates: start: 20050826, end: 20051003
  2. LEXIVA [Suspect]
     Indication: ACQUIRED IMMUNODEFICIENCY SYNDROME
     Dosage: 700MG TWICE PER DAY
     Route: 048
     Dates: start: 20051110, end: 20051225
  3. LEXIVA [Suspect]
     Indication: ACQUIRED IMMUNODEFICIENCY SYNDROME
     Dosage: 1400MG TWICE PER DAY
     Route: 048
     Dates: start: 20051226
  4. LEXIVA [Suspect]
     Indication: ACQUIRED IMMUNODEFICIENCY SYNDROME
     Dosage: 1400MG TWICE PER DAY
     Route: 048
     Dates: start: 20120401, end: 20130224
  5. LEXIVA [Suspect]
     Indication: ACQUIRED IMMUNODEFICIENCY SYNDROME
     Dosage: 1400MG TWICE PER DAY
     Route: 048
     Dates: start: 20130309
  6. EPIVIR [Suspect]
     Indication: ACQUIRED IMMUNODEFICIENCY SYNDROME
     Route: 048
     Dates: start: 20000703, end: 20030331
  7. EPIVIR [Suspect]
     Indication: ACQUIRED IMMUNODEFICIENCY SYNDROME
     Dosage: 150MG TWICE PER DAY
     Route: 048
     Dates: start: 20030401, end: 20051003
  8. EPIVIR [Suspect]
     Indication: ACQUIRED IMMUNODEFICIENCY SYNDROME
     Dosage: 150MG TWICE PER DAY
     Route: 048
     Dates: start: 20051110
  9. EPIVIR [Suspect]
     Indication: ACQUIRED IMMUNODEFICIENCY SYNDROME
     Dosage: 150MG TWICE PER DAY
     Route: 048
     Dates: start: 20120401, end: 20130224
  10. EPIVIR [Suspect]
     Indication: ACQUIRED IMMUNODEFICIENCY SYNDROME
     Dosage: 150MG TWICE PER DAY
     Route: 048
     Dates: start: 20130309
  11. VIREAD [Suspect]
     Indication: ACQUIRED IMMUNODEFICIENCY SYNDROME
     Route: 048
     Dates: start: 20040630, end: 20051003
  12. VIREAD [Suspect]
     Indication: ACQUIRED IMMUNODEFICIENCY SYNDROME
     Route: 048
     Dates: start: 20051110
  13. VIREAD [Suspect]
     Indication: ACQUIRED IMMUNODEFICIENCY SYNDROME
     Route: 048
     Dates: start: 20120401, end: 20130224
  14. VIREAD [Suspect]
     Indication: ACQUIRED IMMUNODEFICIENCY SYNDROME
     Route: 048
     Dates: start: 20130309
  15. DEPAS [Concomitant]
     Indication: INSOMNIA
     Dosage: 2MG PER DAY
     Route: 048
  16. DEPAS [Concomitant]
     Indication: INSOMNIA
     Dosage: 2MG TWICE PER DAY
     Route: 048
     Dates: start: 20120401
  17. DOGMATYL [Concomitant]
     Indication: DEPRESSION
     Dosage: 100MG TWICE PER DAY
     Route: 048
  18. DOGMATYL [Concomitant]
     Indication: INSOMNIA
     Dosage: 100MG TWICE PER DAY
     Route: 048
  19. LENDORMIN [Concomitant]
     Indication: INSOMNIA
     Dosage: .25MG PER DAY
     Route: 048
  20. LENDORMIN [Concomitant]
     Indication: INSOMNIA
     Dosage: .25MG PER DAY
     Route: 048
     Dates: start: 20120401
  21. MYSLEE [Concomitant]
     Indication: INSOMNIA
     Dosage: 20MG PER DAY
     Route: 048
  22. MYSLEE [Concomitant]
     Indication: INSOMNIA
     Dosage: 20MG PER DAY
     Route: 048
     Dates: start: 20120401, end: 20120402
  23. BIOFERMIN [Concomitant]
     Indication: DIARRHOEA
     Dosage: 1G TWICE PER DAY
     Route: 048
     Dates: start: 20090427
  24. PAXIL [Concomitant]
     Indication: INSOMNIA
     Dosage: 20MG PER DAY
     Route: 048
     Dates: start: 20120401
  25. LOPEMIN [Concomitant]
     Indication: DIARRHOEA
     Dosage: 1MG TWICE PER DAY
     Route: 048
     Dates: start: 20120401

REACTIONS (4)
  - Acute hepatitis C [Not Recovered/Not Resolved]
  - Diarrhoea [Recovering/Resolving]
  - Beta 2 microglobulin urine increased [Not Recovered/Not Resolved]
  - Amnesia [Not Recovered/Not Resolved]
